FAERS Safety Report 19677074 (Version 1)
Quarter: 2021Q3

REPORT INFORMATION
  Report Type: Spontaneous
  Country: US (occurrence: US)
  Receive Date: 20210809
  Receipt Date: 20210809
  Transmission Date: 20211014
  Serious: Yes (Other)
  Sender: FDA-Public Use
  Company Number: US-ELI_LILLY_AND_COMPANY-US202108001442

PATIENT
  Sex: Female

DRUGS (1)
  1. RETEVMO [Suspect]
     Active Substance: SELPERCATINIB
     Indication: PRODUCT USED FOR UNKNOWN INDICATION
     Dosage: 320 MG, DAILY
     Route: 065
     Dates: start: 20210619

REACTIONS (3)
  - Cerebrovascular accident [Unknown]
  - Paralysis [Unknown]
  - Subarachnoid haemorrhage [Unknown]
